FAERS Safety Report 24870682 (Version 1)
Quarter: 2025Q1

REPORT INFORMATION
  Report Type: Spontaneous
  Country: PT (occurrence: PT)
  Receive Date: 20250121
  Receipt Date: 20250121
  Transmission Date: 20250409
  Serious: Yes (Death, Other)
  Sender: RANBAXY
  Company Number: PT-SUN PHARMACEUTICAL INDUSTRIES LTD-2025R1-489308

PATIENT
  Age: 48 Year
  Sex: Female

DRUGS (2)
  1. DEXAMETHASONE [Suspect]
     Active Substance: DEXAMETHASONE
     Indication: Plasma cell myeloma
     Route: 065
  2. THALIDOMIDE [Suspect]
     Active Substance: THALIDOMIDE
     Indication: Plasma cell myeloma
     Route: 065

REACTIONS (6)
  - Urosepsis [Fatal]
  - Paraplegia [Fatal]
  - Decubitus ulcer [Fatal]
  - Deep vein thrombosis [Fatal]
  - Hypogammaglobulinaemia [Fatal]
  - Infection [Fatal]
